FAERS Safety Report 4776786-3 (Version None)
Quarter: 2005Q3

REPORT INFORMATION
  Report Type: 
  Country: None (occurrence: None)
  Receive Date: 20050922
  Receipt Date: 20050922
  Transmission Date: 20060218
  Serious: Yes (Hospitalization)
  Sender: FDA-Public Use
  Company Number: None

PATIENT
  Age: 59 Year
  Sex: Female
  Weight: 57 kg

DRUGS (9)
  1. VELCADE [Suspect]
     Indication: WALDENSTROM'S MACROGLOBULINAEMIA
     Dosage: 2.15 MG ON DAY 1, 4, 8, 11 OF CYCLE
     Dates: start: 20041129, end: 20041209
  2. PREDNISONE [Concomitant]
  3. VICODIN [Concomitant]
  4. VALIUM [Concomitant]
  5. TOREDOL [Concomitant]
  6. FAMVIR [Concomitant]
  7. MORPHINE [Concomitant]
  8. VANCOMYCIN [Concomitant]
  9. NAFICILLIN [Concomitant]

REACTIONS (8)
  - BUTTOCK PAIN [None]
  - DIFFICULTY IN WALKING [None]
  - GASTROINTESTINAL HAEMORRHAGE [None]
  - HAEMATOCRIT DECREASED [None]
  - HAEMOGLOBIN DECREASED [None]
  - HERPES ZOSTER [None]
  - LOSS OF CONTROL OF LEGS [None]
  - RASH [None]
